FAERS Safety Report 9014612 (Version 1)
Quarter: 2013Q1

REPORT INFORMATION
  Report Type: Spontaneous
  Country: FR (occurrence: FR)
  Receive Date: 20130115
  Receipt Date: 20130115
  Transmission Date: 20140127
  Serious: Yes (Hospitalization)
  Sender: FDA-Public Use
  Company Number: FR-AMGEN-FRASP2013002729

PATIENT
  Age: 17 Year
  Sex: Female

DRUGS (5)
  1. ENBREL [Suspect]
     Indication: RHEUMATOID ARTHRITIS
     Dosage: UNK
     Route: 058
     Dates: start: 200710, end: 2008
  2. METOJECT [Suspect]
     Indication: RHEUMATOID ARTHRITIS
     Dosage: UNK
     Route: 058
     Dates: start: 200708, end: 2008
  3. PENTASA [Concomitant]
     Dosage: UNK
  4. DUROGESIC [Concomitant]
     Dosage: UNK
  5. PARACETAMOL [Concomitant]
     Dosage: UNK UNK, UNK

REACTIONS (1)
  - Colitis [Not Recovered/Not Resolved]
